FAERS Safety Report 7590524-0 (Version None)
Quarter: 2011Q3

REPORT INFORMATION
  Report Type: 
  Country: None (occurrence: None)
  Receive Date: 20110705
  Receipt Date: 20110622
  Transmission Date: 20111222
  Serious: Yes (Other)
  Sender: FDA-Public Use
  Company Number: CA-BAYER-2011-053939

PATIENT
  Age: 30 Year
  Sex: Female
  Weight: 54 kg

DRUGS (1)
  1. YAZ [Suspect]
     Dosage: UNK, QD
     Route: 048

REACTIONS (3)
  - APHTHOUS STOMATITIS [None]
  - LIP SWELLING [None]
  - PARAESTHESIA ORAL [None]
